FAERS Safety Report 12139023 (Version 1)
Quarter: 2016Q1

REPORT INFORMATION
  Report Type: Spontaneous
  Country: US (occurrence: US)
  Receive Date: 20160302
  Receipt Date: 20160302
  Transmission Date: 20160526
  Serious: No
  Sender: FDA-Public Use
  Company Number: ALCN2016US001665

PATIENT
  Age: 92 Year
  Sex: Female

DRUGS (1)
  1. SYSTANE NIGHTTIME [Suspect]
     Active Substance: MINERAL OIL\PETROLATUM
     Indication: DRY EYE
     Dosage: 1 DF, QD
     Route: 047
     Dates: start: 20160228, end: 20160228

REACTIONS (3)
  - Medication residue present [Recovered/Resolved]
  - Vision blurred [Recovered/Resolved]
  - Eye pruritus [Recovered/Resolved]

NARRATIVE: CASE EVENT DATE: 20160228
